FAERS Safety Report 10863960 (Version 3)
Quarter: 2015Q3

REPORT INFORMATION
  Report Type: Spontaneous
  Country: US (occurrence: US)
  Receive Date: 20150224
  Receipt Date: 20150826
  Transmission Date: 20151125
  Serious: Yes (Hospitalization)
  Sender: FDA-Public Use
  Company Number: US-BAXTER-2015BAX008250

PATIENT
  Sex: Female

DRUGS (1)
  1. DIANEAL LOW CALCIUM PERITONEAL DIALYSIS SOLUTION WITH DEXTROSE [Suspect]
     Active Substance: CALCIUM CHLORIDE\DEXTROSE\MAGNESIUM CHLORIDE\SODIUM CHLORIDE\SODIUM LACTATE
     Indication: PERITONEAL DIALYSIS
     Route: 033

REACTIONS (6)
  - Ventricular tachycardia [Recovered/Resolved]
  - Procedural haemorrhage [Recovered/Resolved]
  - Extremity necrosis [Recovering/Resolving]
  - Diabetic complication [Recovering/Resolving]
  - Vascular procedure complication [Recovered/Resolved]
  - Diabetic vascular disorder [Not Recovered/Not Resolved]

NARRATIVE: CASE EVENT DATE: 2014
